FAERS Safety Report 19789071 (Version 2)
Quarter: 2021Q3

REPORT INFORMATION
  Report Type: Report from Study
  Country: US (occurrence: US)
  Receive Date: 20210904
  Receipt Date: 20210915
  Transmission Date: 20211014
  Serious: No
  Sender: FDA-Public Use
  Company Number: NVSC2021US200664

PATIENT
  Sex: Female

DRUGS (1)
  1. ENTRESTO [Suspect]
     Active Substance: SACUBITRIL\VALSARTAN
     Indication: PRODUCT USED FOR UNKNOWN INDICATION
     Dosage: 1 DF, BID,(97/103MG)
     Route: 048
     Dates: start: 20210830

REACTIONS (4)
  - Inappropriate schedule of product administration [Recovered/Resolved]
  - Hypertension [Unknown]
  - Somnolence [Unknown]
  - Weight [Unknown]
